FAERS Safety Report 10026448 (Version 1)
Quarter: 2014Q1

REPORT INFORMATION
  Report Type: Spontaneous
  Country: JP (occurrence: JP)
  Receive Date: 20140321
  Receipt Date: 20140321
  Transmission Date: 20141002
  Serious: Yes (Hospitalization)
  Sender: FDA-Public Use
  Company Number: JP-009507513-1403JPN007962

PATIENT
  Age: 70 Year
  Sex: Male

DRUGS (2)
  1. DEXAMETHASONE [Suspect]
     Indication: DECREASED APPETITE
     Dosage: 1 MG, QD
     Route: 048
     Dates: start: 2013
  2. GEMCITABINE [Suspect]
     Indication: PANCREATIC CARCINOMA STAGE IV
     Dosage: UNK
     Route: 041
     Dates: start: 201307

REACTIONS (1)
  - Hepatitis B [Recovered/Resolved]
